FAERS Safety Report 16062149 (Version 1)
Quarter: 2019Q1

REPORT INFORMATION
  Report Type: Spontaneous
  Country: HU (occurrence: HU)
  Receive Date: 20190312
  Receipt Date: 20190312
  Transmission Date: 20190418
  Serious: Yes (Other)
  Sender: FDA-Public Use
  Company Number: HU-BAYER-2019-046605

PATIENT
  Age: 29 Year
  Sex: Female

DRUGS (3)
  1. LOW MOLECULAR WEIGHT HEPARIN [Concomitant]
     Active Substance: UNSPECIFIED INGREDIENT
  2. ACETYLSALICYLIC ACID (CARDIO) [Suspect]
     Active Substance: ASPIRIN
     Dosage: UNK
  3. PLASMA [Concomitant]
     Active Substance: HUMAN PLASMA

REACTIONS (6)
  - Premature delivery [None]
  - Gestational hypertension [None]
  - Placental insufficiency [None]
  - Exposure during pregnancy [None]
  - Off label use [None]
  - Product use in unapproved indication [None]
